FAERS Safety Report 4513549-8 (Version None)
Quarter: 2004Q4

REPORT INFORMATION
  Report Type: 
  Country: None (occurrence: None)
  Receive Date: 20041130
  Receipt Date: 20040713
  Transmission Date: 20050328
  Serious: Yes (Disabling, Other)
  Sender: FDA-Public Use
  Company Number: US-GLAXOSMITHKLINE-A0518097A

PATIENT
  Sex: Male
  Weight: 67.7 kg

DRUGS (3)
  1. WELLBUTRIN [Suspect]
  2. CARDURA [Concomitant]
     Dosage: 2MG PER DAY
     Route: 048
  3. THALIDOMIDE [Concomitant]

REACTIONS (1)
  - ATAXIA [None]
